FAERS Safety Report 9678952 (Version 1)
Quarter: 2013Q4

REPORT INFORMATION
  Report Type: Spontaneous
  Country: US (occurrence: US)
  Receive Date: 20131108
  Receipt Date: 20131108
  Transmission Date: 20140711
  Serious: Yes (Hospitalization, Other)
  Sender: FDA-Public Use
  Company Number: US-ASTRAZENECA-2013SE80379

PATIENT
  Age: 58 Year
  Sex: Female

DRUGS (2)
  1. QUETIAPINE [Suspect]
     Indication: BIPOLAR DISORDER
     Route: 048
  2. OLANZAPINE [Suspect]
     Indication: BIPOLAR DISORDER

REACTIONS (5)
  - Catatonia [Recovering/Resolving]
  - Parkinsonism [Unknown]
  - Decubitus ulcer [Recovered/Resolved]
  - Urinary incontinence [Not Recovered/Not Resolved]
  - Faecal incontinence [Not Recovered/Not Resolved]
